FAERS Safety Report 8169968-4 (Version None)
Quarter: 2012Q1

REPORT INFORMATION
  Report Type: 
  Country: None (occurrence: None)
  Receive Date: 20120228
  Receipt Date: 20120228
  Transmission Date: 20120608
  Serious: Yes (Other)
  Sender: FDA-Public Use
  Company Number: None

PATIENT
  Age: 23 Year
  Sex: Female
  Weight: 59.42 kg

DRUGS (1)
  1. ORTHO TRI-CYCLEN LO [Suspect]
     Indication: CONTRACEPTION
     Dates: start: 20120212, end: 20120227

REACTIONS (6)
  - MUSCLE SPASMS [None]
  - URINARY TRACT INFECTION [None]
  - PRODUCT SUBSTITUTION ISSUE [None]
  - HAEMORRHAGE [None]
  - METRORRHAGIA [None]
  - ABDOMINAL DISTENSION [None]
